FAERS Safety Report 17524408 (Version 1)
Quarter: 2020Q1

REPORT INFORMATION
  Report Type: Report from Study
  Country: CA (occurrence: CA)
  Receive Date: 20200310
  Receipt Date: 20200310
  Transmission Date: 20200409
  Serious: Yes (Other)
  Sender: FDA-Public Use
  Company Number: CA-TEVA-2020-CA-1198430

PATIENT
  Age: 53 Year
  Sex: Female
  Weight: 53 kg

DRUGS (15)
  1. BENADRYL [Concomitant]
     Active Substance: DIPHENHYDRAMINE HYDROCHLORIDE
  2. DOXEPIN [Concomitant]
     Active Substance: DOXEPIN
     Indication: HYPERSENSITIVITY
     Dosage: 25 MILLIGRAM DAILY;
     Route: 048
  3. ATORVASTATIN [Concomitant]
     Active Substance: ATORVASTATIN
     Route: 048
  4. CETIRIZINE [Concomitant]
     Active Substance: CETIRIZINE HYDROCHLORIDE
  5. ACTEMRA [Suspect]
     Active Substance: TOCILIZUMAB
     Route: 042
  6. ATORVASTATIN [Concomitant]
     Active Substance: ATORVASTATIN
  7. CLOBETASOL [Concomitant]
     Active Substance: CLOBETASOL
     Route: 065
  8. METHOTREXATE. [Suspect]
     Active Substance: METHOTREXATE
     Route: 030
  9. EPIPEN [Concomitant]
     Active Substance: EPINEPHRINE
  10. METHOTREXATE. [Suspect]
     Active Substance: METHOTREXATE
     Indication: PRODUCT USED FOR UNKNOWN INDICATION
     Route: 030
  11. ACTEMRA [Suspect]
     Active Substance: TOCILIZUMAB
     Indication: RHEUMATOID ARTHRITIS
     Route: 042
  12. ALENDRONATE SODIUM/VITAMIN D3 [Concomitant]
     Active Substance: ALENDRONATE SODIUM\CHOLECALCIFEROL
  13. PREDNISONE. [Concomitant]
     Active Substance: PREDNISONE
  14. RESTASIS [Concomitant]
     Active Substance: CYCLOSPORINE
     Route: 065
  15. AMLODIPINE [Concomitant]
     Active Substance: AMLODIPINE BESYLATE

REACTIONS (14)
  - Infection [Not Recovered/Not Resolved]
  - Nasopharyngitis [Not Recovered/Not Resolved]
  - Product administration error [Not Recovered/Not Resolved]
  - Rash [Not Recovered/Not Resolved]
  - Hypertension [Not Recovered/Not Resolved]
  - Injection site rash [Not Recovered/Not Resolved]
  - Petechiae [Not Recovered/Not Resolved]
  - Back pain [Not Recovered/Not Resolved]
  - Cystitis [Not Recovered/Not Resolved]
  - Hypersensitivity vasculitis [Not Recovered/Not Resolved]
  - Weight decreased [Not Recovered/Not Resolved]
  - Muscle strain [Not Recovered/Not Resolved]
  - Sinusitis [Not Recovered/Not Resolved]
  - Weight increased [Not Recovered/Not Resolved]
